FAERS Safety Report 23866137 (Version 1)
Quarter: 2024Q2

REPORT INFORMATION
  Report Type: Other
  Country: MM (occurrence: None)
  Receive Date: 20240517
  Receipt Date: 20240517
  Transmission Date: 20240716
  Serious: Yes (Death)
  Sender: FDA-Public Use
  Company Number: MM-ROCHE-3564687

PATIENT
  Age: 41 Year
  Sex: Male

DRUGS (2)
  1. TECENTRIQ [Suspect]
     Active Substance: ATEZOLIZUMAB
     Indication: Hepatocellular carcinoma
     Route: 041
     Dates: start: 20240412
  2. AVASTIN [Suspect]
     Active Substance: BEVACIZUMAB
     Indication: Hepatocellular carcinoma
     Route: 042
     Dates: start: 20240412

REACTIONS (1)
  - Death [Fatal]

NARRATIVE: CASE EVENT DATE: 20240427
